FAERS Safety Report 17143724 (Version 14)
Quarter: 2024Q4

REPORT INFORMATION
  Report Type: Spontaneous
  Country: US (occurrence: US)
  Receive Date: 20191212
  Receipt Date: 20241223
  Transmission Date: 20250115
  Serious: No
  Sender: PFIZER
  Company Number: US-PFIZER INC-2019513711

PATIENT
  Age: 77 Year
  Sex: Female

DRUGS (4)
  1. PREMARIN [Suspect]
     Active Substance: ESTROGENS, CONJUGATED
     Dosage: UNK
  2. PREMARIN [Suspect]
     Active Substance: ESTROGENS, CONJUGATED
     Dosage: 1 G, 2X/WEEK
  3. PREMARIN [Suspect]
     Active Substance: ESTROGENS, CONJUGATED
     Dosage: 0.5 G, 2X/WEEK(0.5 GM TWICE WEEKLY AT BEDTIME)
     Route: 067
  4. FLUCONAZOLE [Concomitant]
     Active Substance: FLUCONAZOLE
     Dosage: UNK (DOSE: 150, NUMBER: 3)

REACTIONS (6)
  - Musculoskeletal discomfort [Unknown]
  - Road traffic accident [Unknown]
  - Crying [Unknown]
  - Frustration tolerance decreased [Unknown]
  - Anxiety [Unknown]
  - Off label use [Unknown]
